FAERS Safety Report 14196591 (Version 2)
Quarter: 2018Q1

REPORT INFORMATION
  Report Type: Spontaneous
  Country: US (occurrence: US)
  Receive Date: 20171116
  Receipt Date: 20180326
  Transmission Date: 20180508
  Serious: No
  Sender: FDA-Public Use
  Company Number: US-LUNDBECK-DKLU2039514

PATIENT
  Age: 24 Year
  Sex: Female

DRUGS (2)
  1. NORTHERA [Suspect]
     Active Substance: DROXIDOPA
     Indication: AUTONOMIC NEUROPATHY
     Route: 048
     Dates: start: 20171016
  2. NORTHERA [Suspect]
     Active Substance: DROXIDOPA
     Indication: ORTHOSTATIC HYPOTENSION
     Route: 048
     Dates: start: 20170921

REACTIONS (6)
  - Dry mouth [Unknown]
  - Malaise [Unknown]
  - Drug administration error [Unknown]
  - Migraine [Unknown]
  - Condition aggravated [Unknown]
  - Dizziness [Unknown]

NARRATIVE: CASE EVENT DATE: 20180105
